FAERS Safety Report 7450334-1 (Version None)
Quarter: 2011Q2

REPORT INFORMATION
  Report Type: 
  Country: None (occurrence: None)
  Receive Date: 20110422
  Receipt Date: 20110408
  Transmission Date: 20111010
  Serious: Yes (Hospitalization)
  Sender: FDA-Public Use
  Company Number: MPS1-1000448

PATIENT
  Age: 9 Year
  Sex: Male

DRUGS (1)
  1. ALDURAZYME [Suspect]
     Indication: MUCOPOLYSACCHARIDOSIS I
     Dosage: 2.9 MG, 1X/W, INTRAVENOUS
     Route: 042
     Dates: start: 20090701

REACTIONS (2)
  - CANDIDIASIS [None]
  - PNEUMONIA [None]
